FAERS Safety Report 13849379 (Version 2)
Quarter: 2017Q3

REPORT INFORMATION
  Report Type: Report from Study
  Country: GB (occurrence: GB)
  Receive Date: 20170809
  Receipt Date: 20170821
  Transmission Date: 20171127
  Serious: Yes (Other)
  Sender: FDA-Public Use
  Company Number: GB-SUN PHARMACEUTICAL INDUSTRIES LTD-2017RR-147100

PATIENT
  Sex: Female

DRUGS (4)
  1. PYRIDOXINE [Suspect]
     Active Substance: PYRIDOXINE
     Indication: MYOCLONIC EPILEPSY
     Dosage: UNK
     Route: 065
  2. LEVETIRACETAM. [Suspect]
     Active Substance: LEVETIRACETAM
     Indication: MYOCLONIC EPILEPSY
     Dosage: UNK
     Route: 065
  3. CARBAMAZEPINE. [Suspect]
     Active Substance: CARBAMAZEPINE
     Indication: MYOCLONIC EPILEPSY
     Dosage: UNK
     Route: 065
  4. BROMOCRIPTINE [Suspect]
     Active Substance: BROMOCRIPTINE
     Indication: MYOCLONIC EPILEPSY
     Dosage: UNK
     Route: 065

REACTIONS (4)
  - Epilepsy [Unknown]
  - Dyskinesia [Recovered/Resolved]
  - Drug effect incomplete [Unknown]
  - Drug ineffective [Unknown]
